FAERS Safety Report 19854889 (Version 1)
Quarter: 2021Q3

REPORT INFORMATION
  Report Type: Spontaneous
  Country: US (occurrence: US)
  Receive Date: 20210920
  Receipt Date: 20210920
  Transmission Date: 20211014
  Serious: No
  Sender: FDA-Public Use
  Company Number: US-AUROBINDO-AUR-APL-2020-049104

PATIENT
  Age: 58 Year
  Sex: Female
  Weight: 90.71 kg

DRUGS (3)
  1. ALPRAZOLAM TABLETS USP 0.5MG [Suspect]
     Active Substance: ALPRAZOLAM
     Indication: ANXIETY
     Dosage: 0.5 TABLET ONCE A DAY: AS NEEDED
     Route: 065
     Dates: start: 20200702, end: 20200917
  2. TYLENOL [Concomitant]
     Active Substance: ACETAMINOPHEN
     Indication: PRODUCT USED FOR UNKNOWN INDICATION
     Dosage: UNK
     Route: 065
  3. ALPRAZOLAM TABLETS USP 0.5MG [Suspect]
     Active Substance: ALPRAZOLAM
     Indication: NERVE INJURY

REACTIONS (4)
  - Urticaria [Not Recovered/Not Resolved]
  - Allergic reaction to excipient [Not Recovered/Not Resolved]
  - Joint swelling [Not Recovered/Not Resolved]
  - Swelling [Not Recovered/Not Resolved]
